FAERS Safety Report 7260051-9 (Version None)
Quarter: 2011Q1

REPORT INFORMATION
  Report Type: 
  Country: None (occurrence: None)
  Receive Date: 20110130
  Receipt Date: 20100908
  Transmission Date: 20110831
  Serious: No
  Sender: FDA-Public Use
  Company Number: US-ABBOTT-10P-163-0669391-00

PATIENT
  Age: 60 Year
  Sex: Female

DRUGS (11)
  1. ALPRAZOLAM [Concomitant]
     Indication: ANXIETY
  2. MULTIVITAMIN [Concomitant]
     Indication: HYPERTENSION
     Dosage: DAILY
  3. HUMIRA [Suspect]
     Indication: RHEUMATOID ARTHRITIS
     Dates: start: 20100726
  4. LOVOXIL [Concomitant]
     Indication: HYPOTHYROIDISM
  5. FOLIC ACID [Concomitant]
     Indication: PRODUCT USED FOR UNKNOWN INDICATION
     Dosage: 5 TABS THE DAY AFTER METHOTREXATE
  6. AMLODIPINE [Concomitant]
     Indication: HYPERTENSION
  7. ALPRAZOLAM [Concomitant]
     Dosage: TIME RELEASE DAILY AT BEDTIME
  8. METHOTREXATE [Concomitant]
     Indication: PRODUCT USED FOR UNKNOWN INDICATION
  9. ALPRAZOLAM [Concomitant]
  10. ALPRAZOLAM [Concomitant]
  11. UNKNOWN MEDICATION [Concomitant]
     Indication: VITAMIN SUPPLEMENTATION
     Dosage: DAILY

REACTIONS (1)
  - HEADACHE [None]
